FAERS Safety Report 22385657 (Version 6)
Quarter: 2023Q2

REPORT INFORMATION
  Report Type: Spontaneous
  Country: US (occurrence: US)
  Receive Date: 20230530
  Receipt Date: 20230630
  Transmission Date: 20230722
  Serious: No
  Sender: FDA-Public Use
  Company Number: US-PFIZER INC-PV202300093554

PATIENT
  Age: 66 Year
  Sex: Male

DRUGS (2)
  1. EUCRISA [Suspect]
     Active Substance: CRISABOROLE
     Dosage: 1 G, 2X/DAY (TO ARMS AND LEGS)
  2. EUCRISA [Suspect]
     Active Substance: CRISABOROLE
     Dosage: 1 G, DAILY (APPLY 1 GRAM TO ARMS AND LEGS DAILY AS DIRECTED)
     Route: 061

REACTIONS (5)
  - Eczema [Unknown]
  - Pain [Unknown]
  - Peripheral swelling [Unknown]
  - Pruritus [Unknown]
  - Rash [Unknown]
